FAERS Safety Report 11514861 (Version 2)
Quarter: 2015Q3

REPORT INFORMATION
  Report Type: Spontaneous
  Country: US (occurrence: US)
  Receive Date: 20150916
  Receipt Date: 20150928
  Transmission Date: 20151125
  Serious: Yes (Hospitalization, Other)
  Sender: FDA-Public Use
  Company Number: US-NPS_PHARMACEUTICALS-000901

PATIENT
  Age: 68 Year
  Sex: Female

DRUGS (6)
  1. TPN [Concomitant]
     Active Substance: AMINO ACIDS\DEXTROSE\ELECTROLYTES NOS\SOYBEAN OIL
     Indication: MEDICAL DIET
     Dosage: STREN/VOLUM: EXACT AMOUNT UNKNOWN|FREQU: ONCE A DAY
     Dates: start: 201302, end: 201401
  2. TPN [Concomitant]
     Active Substance: AMINO ACIDS\DEXTROSE\ELECTROLYTES NOS\SOYBEAN OIL
     Dosage: STREN/VOLUM: 1300 ML|FREQU: 7 DAYS WEEKLY - 12 HRS
     Dates: start: 2014
  3. AMBIEN [Concomitant]
     Active Substance: ZOLPIDEM TARTRATE
     Indication: INSOMNIA
     Dosage: STREN/VOLUM: 5 MG |FREQU: HS
  4. TPN [Concomitant]
     Active Substance: AMINO ACIDS\DEXTROSE\ELECTROLYTES NOS\SOYBEAN OIL
     Dosage: STREN/VOLUM: 1600 ML|FREQU: 7 DAYS / WEEK / OVER 12 HOURS
     Dates: start: 201401, end: 2014
  5. ZOFRAN [Concomitant]
     Active Substance: ONDANSETRON HYDROCHLORIDE
     Indication: NAUSEA
     Dosage: STREN/VOLUM: 4 MG|FREQU: AS NEEDED
  6. GATTEX [Suspect]
     Active Substance: TEDUGLUTIDE\WATER
     Indication: SHORT-BOWEL SYNDROME
     Dosage: STREN/VOLUM: 0.33 ML|FREQU: ONCE A DAY
     Route: 058
     Dates: start: 20131228, end: 20140401

REACTIONS (13)
  - Pyrexia [Unknown]
  - Weight increased [Not Recovered/Not Resolved]
  - Abdominal distension [Not Recovered/Not Resolved]
  - Mass [Recovered/Resolved]
  - Chills [Not Recovered/Not Resolved]
  - Nasal congestion [Recovered/Resolved]
  - Device related infection [Recovering/Resolving]
  - Lymphadenopathy [Not Recovered/Not Resolved]
  - Bacteraemia [Not Recovered/Not Resolved]
  - Alveolar rhabdomyosarcoma [Recovered/Resolved]
  - Intestinal obstruction [Recovering/Resolving]
  - Nausea [Unknown]
  - Rhinorrhoea [Recovered/Resolved]

NARRATIVE: CASE EVENT DATE: 201312
